FAERS Safety Report 10166723 (Version 1)
Quarter: 2014Q2

REPORT INFORMATION
  Report Type: Spontaneous
  Country: US (occurrence: None)
  Receive Date: 20140509
  Receipt Date: 20140509
  Transmission Date: 20141212
  Serious: Yes (Other)
  Sender: FDA-Public Use
  Company Number: None

PATIENT
  Sex: 0

DRUGS (1)
  1. ZI XIU TANG BEE POLLEN CAPSULES [Suspect]
     Indication: WEIGHT CONTROL

REACTIONS (1)
  - Ill-defined disorder [None]
